FAERS Safety Report 9062845 (Version 3)
Quarter: 2013Q2

REPORT INFORMATION
  Report Type: Report from Study
  Country: CA (occurrence: CA)
  Receive Date: 20130128
  Receipt Date: 20130513
  Transmission Date: 20140414
  Serious: Yes (Hospitalization, Disabling, Other)
  Sender: FDA-Public Use
  Company Number: CA-JNJFOC-20130110527

PATIENT
  Age: 31 Year
  Sex: Male
  Weight: 113 kg

DRUGS (5)
  1. REMICADE [Suspect]
     Indication: COLITIS ULCERATIVE
     Dosage: INFUSION NO.:19
     Route: 042
     Dates: start: 20130117
  2. REMICADE [Suspect]
     Indication: COLITIS ULCERATIVE
     Route: 042
     Dates: start: 20110105, end: 20130318
  3. REMICADE [Suspect]
     Indication: COLITIS ULCERATIVE
     Route: 042
     Dates: start: 201012
  4. 6-MP [Concomitant]
     Route: 065
  5. ANTIDEPRESSANT [Concomitant]
     Route: 065

REACTIONS (1)
  - Colon cancer [Unknown]
